FAERS Safety Report 8962537 (Version 1)
Quarter: 2012Q4

REPORT INFORMATION
  Report Type: Spontaneous
  Country: US (occurrence: None)
  Receive Date: 20121205
  Receipt Date: 20121205
  Transmission Date: 20130627
  Serious: Yes (Hospitalization)
  Sender: FDA-Public Use
  Company Number: VAL_01014_2012

PATIENT
  Sex: Female

DRUGS (2)
  1. METOPROLOL [Suspect]
     Dosage: (DF)
  2. TOPROL [Suspect]
     Dosage: (DF)

REACTIONS (1)
  - Heart rate irregular [None]
